FAERS Safety Report 6168903-8 (Version None)
Quarter: 2009Q2

REPORT INFORMATION
  Report Type: 
  Country: None (occurrence: None)
  Receive Date: 20090427
  Receipt Date: 20090416
  Transmission Date: 20091009
  Serious: Yes (Hospitalization, Disabling, Other)
  Sender: FDA-Public Use
  Company Number: PHHY2009BR14518

PATIENT
  Age: 80 Year
  Sex: Male
  Weight: 80 kg

DRUGS (10)
  1. COMTAN [Suspect]
     Indication: PARKINSON'S DISEASE
     Dosage: 1.5 TABLET/DAY
     Route: 048
  2. PROLOPA [Concomitant]
     Indication: PARKINSON'S DISEASE
     Dosage: 200 MG/5 MG
  3. NIAR [Concomitant]
     Indication: PARKINSON'S DISEASE
     Dosage: 5 MG, BID
     Route: 048
  4. PHENOBARBITAL [Concomitant]
     Indication: EPILEPSY
     Dosage: 100 MG, QD
  5. ARADOIS [Concomitant]
     Indication: HYPERTENSION
     Dosage: 1 OR ? TABLET (PRN)
     Route: 048
  6. TEGRETOL [Concomitant]
     Indication: EPILEPSY
     Dosage: 200 MG, QD
  7. TEGRETOL [Concomitant]
     Dosage: 200 MG, BID
     Dates: start: 20090416
  8. METFORMIN HCL [Concomitant]
     Indication: DIABETES MELLITUS
     Dosage: 500 MG, QD
     Route: 048
  9. ASPIRIN [Concomitant]
     Dosage: 100 MG, QD
     Route: 048
  10. ANAFRANIL [Concomitant]
     Dosage: 25 MG, BID

REACTIONS (11)
  - BACK PAIN [None]
  - DIABETES MELLITUS [None]
  - DYSURIA [None]
  - EPILEPSY [None]
  - HYPERTENSION [None]
  - ORCHIDECTOMY [None]
  - PROSTATE CANCER [None]
  - PROSTATE CANCER METASTATIC [None]
  - PROSTATIC SPECIFIC ANTIGEN INCREASED [None]
  - SCAR [None]
  - URINARY TRACT INFECTION [None]
